FAERS Safety Report 5637428-8 (Version None)
Quarter: 2008Q1

REPORT INFORMATION
  Report Type: 
  Country: None (occurrence: None)
  Receive Date: 20080219
  Receipt Date: 20080204
  Transmission Date: 20080703
  Serious: Yes (Death)
  Sender: FDA-Public Use
  Company Number: 2008-01260

PATIENT
  Age: 45 Year
  Sex: Female

DRUGS (8)
  1. FENTANYL [Suspect]
  2. AMLODIPINE BESYLATE [Suspect]
  3. BENAZEPRIL HCL [Suspect]
  4. MIRTAZAPINE [Suspect]
  5. DIPHENHYDRAMINE HCL [Suspect]
  6. PROMETHAZINE [Suspect]
  7. CITALOPRAM HYDROBROMIDE [Suspect]
  8. QUETIAPINE FUMARATE [Suspect]

REACTIONS (1)
  - CARDIO-RESPIRATORY ARREST [None]
